FAERS Safety Report 8040606-4 (Version None)
Quarter: 2012Q1

REPORT INFORMATION
  Report Type: 
  Country: None (occurrence: None)
  Receive Date: 20120111
  Receipt Date: 20111229
  Transmission Date: 20120608
  Serious: No
  Sender: FDA-Public Use
  Company Number: US-AMGEN-USASP2011066886

PATIENT
  Age: 41 Year
  Sex: Female
  Weight: 86.168 kg

DRUGS (5)
  1. METHOTREXATE [Concomitant]
     Dosage: UNK
  2. FOLIC ACID [Concomitant]
     Dosage: UNK
  3. PREDNISONE TAB [Concomitant]
     Dosage: 5 MG, BID
     Route: 048
  4. INDOMETHACIN [Concomitant]
     Dosage: 75 MG, BID
     Route: 048
  5. ENBREL [Suspect]
     Indication: ANKYLOSING SPONDYLITIS
     Dosage: 50 MG, QWK
     Route: 058
     Dates: start: 20111115, end: 20111227

REACTIONS (2)
  - INJECTION SITE ERYTHEMA [None]
  - HEADACHE [None]
